FAERS Safety Report 7937883-4 (Version None)
Quarter: 2011Q4

REPORT INFORMATION
  Report Type: 
  Country: None (occurrence: None)
  Receive Date: 20111123
  Receipt Date: 20111114
  Transmission Date: 20120403
  Serious: Yes (Hospitalization, Other)
  Sender: FDA-Public Use
  Company Number: US-BAXTER-2011BH035244

PATIENT
  Sex: Female

DRUGS (4)
  1. CEFAZOLIN [Suspect]
     Indication: PERITONITIS BACTERIAL
     Route: 033
     Dates: start: 20111002, end: 20111004
  2. DIANEAL [Suspect]
     Indication: PERITONEAL DIALYSIS
     Route: 033
     Dates: start: 20110401
  3. VANCOMYCIN [Suspect]
     Indication: PERITONITIS BACTERIAL
     Route: 033
     Dates: start: 20111004
  4. EXTRANEAL [Suspect]
     Indication: PERITONEAL DIALYSIS
     Route: 033
     Dates: start: 20110901, end: 20111006

REACTIONS (5)
  - SKIN EXFOLIATION [None]
  - PERITONITIS BACTERIAL [None]
  - RASH [None]
  - RASH GENERALISED [None]
  - PERITONEAL DIALYSIS COMPLICATION [None]
